FAERS Safety Report 4597965-4 (Version None)
Quarter: 2005Q1

REPORT INFORMATION
  Report Type: 
  Country: None (occurrence: None)
  Receive Date: 20050301
  Receipt Date: 20050225
  Transmission Date: 20050727
  Serious: Yes (Hospitalization)
  Sender: FDA-Public Use
  Company Number: 211314

PATIENT
  Age: 77 Year
  Sex: Female
  Weight: 72.1 kg

DRUGS (10)
  1. AVASTIN [Suspect]
     Indication: HEPATIC NEOPLASM MALIGNANT
     Dosage: 10 MG/KG, Q2W, INTRAVENOUS
     Route: 042
     Dates: start: 20040824
  2. GEMCITABINE (GEMCITABINE HYDROCHLORIDE) [Suspect]
     Indication: HEPATIC NEOPLASM MALIGNANT
     Dosage: 750 MG/M2, INTRAVENOUS
     Route: 042
     Dates: start: 20040908
  3. OXALIPLATIN (OXALIPLATIN) [Suspect]
     Indication: HEPATIC NEOPLASM MALIGNANT
     Dosage: 63.75 MG/M2, Q2W, INTRAVENOUS
     Route: 042
     Dates: start: 20040908
  4. MS CONTIN [Concomitant]
  5. OXYCODONE HCL [Concomitant]
  6. TOPROL (METOPROLOL SUCCINATE) [Concomitant]
  7. IRON (IRON NOS) [Concomitant]
  8. COLACE (DOCUSATE SODIUM) [Concomitant]
  9. SENNA (SENNA) [Concomitant]
  10. MIRALAX [Concomitant]

REACTIONS (3)
  - HYPERTENSION [None]
  - PAIN [None]
  - PANCREATITIS [None]
